FAERS Safety Report 14172734 (Version 3)
Quarter: 2018Q1

REPORT INFORMATION
  Report Type: Spontaneous
  Country: DE (occurrence: DE)
  Receive Date: 20171109
  Receipt Date: 20180228
  Transmission Date: 20180508
  Serious: Yes (Disabling, Other)
  Sender: FDA-Public Use
  Company Number: DE-JNJFOC-20171102018

PATIENT
  Sex: Female

DRUGS (2)
  1. REGAINE FRAUEN SCHAUM [Suspect]
     Active Substance: MINOXIDIL
     Route: 061
  2. REGAINE FRAUEN SCHAUM [Suspect]
     Active Substance: MINOXIDIL
     Indication: PRODUCT USED FOR UNKNOWN INDICATION
     Route: 061
     Dates: start: 20171028

REACTIONS (19)
  - Skin burning sensation [Unknown]
  - Pain of skin [Unknown]
  - Eye swelling [Unknown]
  - Lip swelling [Recovered/Resolved]
  - Circulatory collapse [Recovered/Resolved]
  - Acne [Unknown]
  - Palpitations [Unknown]
  - Pruritus [Unknown]
  - Skin fissures [Unknown]
  - Swelling face [Recovered/Resolved]
  - Angioedema [Unknown]
  - Skin disorder [Not Recovered/Not Resolved]
  - Dizziness [Unknown]
  - Swelling face [Recovered/Resolved]
  - Skin swelling [Unknown]
  - Skin haemorrhage [Unknown]
  - Pruritus [Unknown]
  - Cardiovascular insufficiency [Unknown]
  - Dyspnoea [Unknown]

NARRATIVE: CASE EVENT DATE: 2017
